FAERS Safety Report 10600335 (Version 2)
Quarter: 2014Q4

REPORT INFORMATION
  Report Type: Report from Study
  Country: US (occurrence: US)
  Receive Date: 20141123
  Receipt Date: 20141123
  Transmission Date: 20150529
  Serious: Yes (Life-Threatening, Hospitalization)
  Sender: FDA-Public Use
  Company Number: US-BRISTOL-MYERS SQUIBB COMPANY-21424189

PATIENT
  Age: 61 Year
  Sex: Female
  Weight: 60.1 kg

DRUGS (1)
  1. CETUXIMAB [Suspect]
     Active Substance: CETUXIMAB
     Indication: OROPHARYNGEAL CANCER
     Dosage: 1DF = 400MG/MM.?6 CONCURRENT DOSES: 250 MG/MM.?TOTAL DOSE: 3040 MG
     Dates: start: 20140603, end: 20140715

REACTIONS (1)
  - Arterial injury [Recovered/Resolved]

NARRATIVE: CASE EVENT DATE: 20140914
